FAERS Safety Report 12072115 (Version 5)
Quarter: 2016Q1

REPORT INFORMATION
  Report Type: Report from Study
  Country: MX (occurrence: MX)
  Receive Date: 20160212
  Receipt Date: 20160302
  Transmission Date: 20160526
  Serious: Yes (Death, Life-Threatening, Hospitalization)
  Sender: FDA-Public Use
  Company Number: MX-SA-2016SA021939

PATIENT
  Age: 55 Year
  Sex: Male

DRUGS (1)
  1. FABRAZYME [Suspect]
     Active Substance: AGALSIDASE BETA
     Indication: FABRY^S DISEASE
     Route: 042
     Dates: end: 2016

REACTIONS (8)
  - Hemiplegia [Unknown]
  - Renal failure [Fatal]
  - Fatigue [Unknown]
  - Cardiac arrest [Fatal]
  - Arrhythmia [Fatal]
  - Listless [Unknown]
  - Pulmonary oedema [Fatal]
  - Brain neoplasm [Fatal]

NARRATIVE: CASE EVENT DATE: 2016
